FAERS Safety Report 24111259 (Version 8)
Quarter: 2025Q1

REPORT INFORMATION
  Report Type: Other
  Country: US (occurrence: US)
  Receive Date: 20240718
  Receipt Date: 20250311
  Transmission Date: 20250409
  Serious: No
  Sender: TRAVERE THERAPEUTICS
  Company Number: US-TRAVERE-2024TVT00580

PATIENT
  Age: 33 Year
  Sex: Female

DRUGS (3)
  1. FILSPARI [Suspect]
     Active Substance: SPARSENTAN
     Indication: IgA nephropathy
     Route: 048
     Dates: start: 20240531
  2. FILSPARI [Suspect]
     Active Substance: SPARSENTAN
     Dosage: LOT NUMBER: 1976071 AND EXPIRY DATE: 31-MAY-2026/ 03-FEB-2025
     Route: 048
     Dates: start: 202406
  3. OZEMPIC [Concomitant]
     Active Substance: SEMAGLUTIDE

REACTIONS (11)
  - Arthralgia [None]
  - Nasopharyngitis [Unknown]
  - Sinus congestion [Unknown]
  - Pyrexia [Unknown]
  - Wrong technique in product usage process [Unknown]
  - Gastric pH decreased [Unknown]
  - Hypersensitivity [Unknown]
  - Oedema [Unknown]
  - Urine abnormality [Unknown]
  - Dehydration [Unknown]
  - Pharyngitis streptococcal [Unknown]

NARRATIVE: CASE EVENT DATE: 20240801
